FAERS Safety Report 9145765 (Version 3)
Quarter: 2013Q3

REPORT INFORMATION
  Report Type: Spontaneous
  Country: JP (occurrence: JP)
  Receive Date: 20130307
  Receipt Date: 20130917
  Transmission Date: 20140515
  Serious: Yes (Other)
  Sender: FDA-Public Use
  Company Number: PHHY2013JP021633

PATIENT
  Age: 66 Year
  Sex: Female

DRUGS (6)
  1. ZOMETA [Suspect]
     Indication: HYPERCALCAEMIA
     Dosage: DOSE BETWEEN 0.75 MG AND 1 MG
     Route: 041
     Dates: start: 20100817, end: 20120110
  2. 5-FU [Concomitant]
     Indication: BREAST CANCER
     Dosage: UNK UKN, UNK
     Route: 042
     Dates: start: 20100202, end: 20100406
  3. EPIRUBICIN HYDROCHLORIDE [Concomitant]
     Indication: BREAST CANCER
     Dosage: UNK UKN, UNK
     Route: 042
     Dates: start: 20100202, end: 20100406
  4. ENDOXAN [Concomitant]
     Indication: BREAST CANCER
     Dosage: UNK UKN, UNK
     Route: 042
     Dates: start: 20100202, end: 20100406
  5. TAXOTERE [Concomitant]
     Indication: BREAST CANCER
     Dosage: UNK UKN, UNK
     Route: 042
     Dates: start: 20100427, end: 20130521
  6. TS-1 [Concomitant]
     Indication: BREAST CANCER
     Dosage: 80 MG
     Route: 048
     Dates: start: 20130611

REACTIONS (10)
  - Swelling [Not Recovered/Not Resolved]
  - Pain in jaw [Recovering/Resolving]
  - Purulent discharge [Recovering/Resolving]
  - Erythema [Recovering/Resolving]
  - Hypoaesthesia [Not Recovered/Not Resolved]
  - Tooth abscess [Recovered/Resolved]
  - Gingival swelling [Not Recovered/Not Resolved]
  - Paraesthesia oral [Recovering/Resolving]
  - Tenderness [Recovering/Resolving]
  - C-reactive protein increased [Unknown]
